FAERS Safety Report 11732645 (Version 1)
Quarter: 2015Q4

REPORT INFORMATION
  Report Type: Spontaneous
  Country: US (occurrence: US)
  Receive Date: 20151113
  Receipt Date: 20151113
  Transmission Date: 20160304
  Serious: Yes (Hospitalization)
  Sender: FDA-Public Use
  Company Number: US-BEH-2015055468

PATIENT
  Sex: Male
  Weight: 63 kg

DRUGS (18)
  1. ADVAIR HFA [Concomitant]
     Active Substance: FLUTICASONE PROPIONATE\SALMETEROL XINAFOATE
  2. PROAIR HFA [Concomitant]
     Active Substance: ALBUTEROL SULFATE
  3. TYLENOL EXTRA STRENGTH [Concomitant]
     Active Substance: ACETAMINOPHEN
  4. ALLOPURINOL. [Concomitant]
     Active Substance: ALLOPURINOL
  5. AZILECT [Concomitant]
     Active Substance: RASAGILINE MESYLATE
  6. SODIUM CHLORIDE. [Concomitant]
     Active Substance: SODIUM CHLORIDE
  7. OXYGEN. [Concomitant]
     Active Substance: OXYGEN
  8. NEUPRO [Concomitant]
     Active Substance: ROTIGOTINE
  9. DIPHENHYDRAMINE. [Concomitant]
     Active Substance: DIPHENHYDRAMINE
  10. ZEMAIRA [Suspect]
     Active Substance: .ALPHA.1-PROTEINASE INHIBITOR HUMAN
     Indication: COMPLEMENT FACTOR ABNORMAL
  11. LASIX [Concomitant]
     Active Substance: FUROSEMIDE
  12. PRAVACHOL [Concomitant]
     Active Substance: PRAVASTATIN SODIUM
  13. ZEMAIRA [Suspect]
     Active Substance: .ALPHA.1-PROTEINASE INHIBITOR HUMAN
     Indication: ENZYME ABNORMALITY
  14. FOLBEE [Concomitant]
  15. EPIPEN [Concomitant]
     Active Substance: EPINEPHRINE
  16. MUCINEX [Concomitant]
     Active Substance: GUAIFENESIN
  17. TAMSULOSIN [Concomitant]
     Active Substance: TAMSULOSIN
  18. SPIRIVA [Concomitant]
     Active Substance: TIOTROPIUM BROMIDE MONOHYDRATE

REACTIONS (3)
  - Fungal infection [Unknown]
  - Urinary tract disorder [Unknown]
  - Dyspnoea [Unknown]
